FAERS Safety Report 5455914-0 (Version None)
Quarter: 2007Q3

REPORT INFORMATION
  Report Type: 
  Country: None (occurrence: None)
  Receive Date: 20070918
  Receipt Date: 20070430
  Transmission Date: 20080115
  Serious: Yes (Other)
  Sender: FDA-Public Use
  Company Number: US-ASTRAZENECA-2006UW24296

PATIENT
  Sex: Male
  Weight: 59.1 kg

DRUGS (6)
  1. SEROQUEL [Suspect]
     Indication: SLEEP DISORDER
     Dosage: 50-900 MG + 1200 MG
     Route: 048
     Dates: start: 20020101
  2. ZYPREXA [Suspect]
     Dates: start: 20000101, end: 20060101
  3. ABILIFY [Concomitant]
     Route: 048
  4. HALDOL [Concomitant]
     Dates: start: 19940101
  5. THORAZINE [Concomitant]
     Dates: start: 19940101
  6. XANAX [Concomitant]

REACTIONS (3)
  - DIABETES MELLITUS [None]
  - DIABETIC COMA [None]
  - KETOACIDOSIS [None]
